FAERS Safety Report 11629256 (Version 4)
Quarter: 2016Q1

REPORT INFORMATION
  Report Type: Spontaneous
  Country: US (occurrence: US)
  Receive Date: 20151014
  Receipt Date: 20160211
  Transmission Date: 20160525
  Serious: No
  Sender: FDA-Public Use
  Company Number: US-PFIZER INC-2015342929

PATIENT
  Age: 59 Year
  Sex: Female
  Weight: 91 kg

DRUGS (2)
  1. CHANTIX [Suspect]
     Active Substance: VARENICLINE TARTRATE
     Dosage: 0.5 MG, 2X/DAY
     Route: 048
  2. CHANTIX [Suspect]
     Active Substance: VARENICLINE TARTRATE
     Indication: SMOKING CESSATION THERAPY
     Dosage: 1 MG IN THE MORNING AND HALF MG AT EVENING, TWICE A DAY
     Route: 048
     Dates: start: 201507

REACTIONS (4)
  - Depression [Not Recovered/Not Resolved]
  - Sleep disorder [Recovered/Resolved]
  - Intentional product use issue [Recovered/Resolved]
  - Insomnia [Recovered/Resolved]

NARRATIVE: CASE EVENT DATE: 2015
